FAERS Safety Report 5715311-7 (Version None)
Quarter: 2008Q2

REPORT INFORMATION
  Report Type: 
  Country: None (occurrence: None)
  Receive Date: 20080423
  Receipt Date: 20080328
  Transmission Date: 20081010
  Serious: Yes (Other)
  Sender: FDA-Public Use
  Company Number: BR-PFIZER INC-2008028947

PATIENT
  Sex: Female
  Weight: 44 kg

DRUGS (2)
  1. DEPO-PROVERA SUSPENSION/INJ [Suspect]
     Indication: CONTRACEPTION
     Dates: start: 20071104, end: 20071104
  2. DEPO-PROVERA SUSPENSION/INJ [Suspect]
     Dates: start: 20080107, end: 20080107

REACTIONS (3)
  - MENSTRUATION IRREGULAR [None]
  - MUSCLE ATROPHY [None]
  - WEIGHT INCREASED [None]
